FAERS Safety Report 4594630-4 (Version None)
Quarter: 2005Q1

REPORT INFORMATION
  Report Type: 
  Country: None (occurrence: None)
  Receive Date: 20050301
  Receipt Date: 20041110
  Transmission Date: 20050727
  Serious: Yes (Life-Threatening, Hospitalization)
  Sender: FDA-Public Use
  Company Number: US-BRISTOL-MYERS SQUIBB COMPANY-12761144

PATIENT
  Age: 65 Year
  Sex: Male
  Weight: 104 kg

DRUGS (9)
  1. ERBITUX [Suspect]
     Indication: COLORECTAL CANCER METASTATIC
     Dosage: LOADING DOSE (896 MG AT 150 CC/HR), DURATION 5-10 MINS, REC'D 5-10 ML
     Route: 042
     Dates: start: 20040929, end: 20040929
  2. DIPHENHYDRAMINE HCL [Concomitant]
     Indication: PREMEDICATION
     Route: 042
     Dates: start: 20040929, end: 20040929
  3. GLUCOPHAGE [Concomitant]
  4. NITROGLYCERIN [Concomitant]
  5. ATENOLOL [Concomitant]
  6. GLYBURIDE [Concomitant]
  7. LANOXIN [Concomitant]
  8. LASIX [Concomitant]
  9. POTASSIUM CHLORIDE [Concomitant]

REACTIONS (1)
  - ANAPHYLACTIC REACTION [None]
